FAERS Safety Report 18807940 (Version 4)
Quarter: 2021Q1

REPORT INFORMATION
  Report Type: Spontaneous
  Country: JP (occurrence: JP)
  Receive Date: 20210129
  Receipt Date: 20210329
  Transmission Date: 20210419
  Serious: Yes (Hospitalization, Other)
  Sender: FDA-Public Use
  Company Number: JP-GLAXOSMITHKLINE-JP2021JPN017196

PATIENT
  Age: 63 Year
  Sex: Female
  Weight: 48 kg

DRUGS (18)
  1. PROGRAF [Concomitant]
     Active Substance: TACROLIMUS
     Dosage: UNK
  2. BAYASPIRIN TABLETS [Concomitant]
     Dosage: 100 MG, QD
  3. BROTIZOLAM OD TABLETS [Concomitant]
     Dosage: 0.25 MG, QD
  4. MIYA?BM [Concomitant]
     Active Substance: CLOSTRIDIUM BUTYRICUM SPORES STRAIN M-55
     Dosage: 1 DF, TID
  5. LOXONIN TABLETS [Concomitant]
     Active Substance: LOXOPROFEN SODIUM
     Dosage: 60 MG, PRN
  6. CELLCEPT [Concomitant]
     Active Substance: MYCOPHENOLATE MOFETIL\MYCOPHENOLATE MOFETIL HYDROCHLORIDE
     Dosage: 500 MG, QD
  7. SENNOSIDES TABLET [Concomitant]
     Active Substance: SENNOSIDES
     Dosage: 24 MG, QD
  8. PREDONINE [Concomitant]
     Active Substance: PREDNISOLONE
     Dosage: 5 MG, QD
  9. NEXIUM [Concomitant]
     Active Substance: ESOMEPRAZOLE MAGNESIUM
     Dosage: 10 MG, QD
  10. FEBURIC TABLETS [Concomitant]
     Active Substance: FEBUXOSTAT
     Dosage: 20 MG, QD
  11. INSULIN GLARGINE BS INJECTION [Concomitant]
     Dosage: 3 IU, QD, BEFORE BEDTIME
  12. BENLYSTA [Suspect]
     Active Substance: BELIMUMAB
     Indication: SYSTEMIC LUPUS ERYTHEMATOSUS
     Dosage: 200 MG, WE
     Route: 058
     Dates: start: 20190326, end: 20201207
  13. DAIPHEN COMBINATION TABLETS [Concomitant]
     Dosage: 1 DF, TWICE A WEEK(MONDAY AND THURSDAY)
  14. ALFACALCIDOL TABLET [Concomitant]
     Dosage: 0.25 ?G, QD
  15. PREDNISOLONE TABLETS [Concomitant]
     Active Substance: PREDNISOLONE
     Dosage: 3 MG, QD
  16. THYRADIN S [Concomitant]
     Active Substance: LEVOTHYROXINE SODIUM
     Dosage: 25 ?G, QD
  17. AMLODIPINE OD TABLETS [Concomitant]
     Active Substance: AMLODIPINE BESYLATE
     Dosage: 10 MG, QD
  18. HUMALOG PEN [Concomitant]
     Active Substance: INSULIN LISPRO
     Dosage: 8 IU AT THE JUST BEFORE BREAKFAST AND DINNER, 14 IU JUST BEFORE LUNCH
     Route: 042

REACTIONS (5)
  - Constipation [Unknown]
  - Affective disorder [Recovered/Resolved]
  - Depressed mood [Recovered/Resolved]
  - Diverticulum intestinal haemorrhagic [Recovered/Resolved]
  - Hallucination, visual [Recovering/Resolving]

NARRATIVE: CASE EVENT DATE: 202005
